FAERS Safety Report 19115146 (Version 2)
Quarter: 2021Q2

REPORT INFORMATION
  Report Type: Spontaneous
  Country: DE (occurrence: DE)
  Receive Date: 20210409
  Receipt Date: 20210603
  Transmission Date: 20210717
  Serious: No
  Sender: FDA-Public Use
  Company Number: DE-PFIZER INC-2021358543

PATIENT
  Age: 34 Year
  Sex: Female

DRUGS (1)
  1. FRAGMIN P [Suspect]
     Active Substance: DALTEPARIN SODIUM

REACTIONS (3)
  - Wrong technique in device usage process [Unknown]
  - Needle issue [Unknown]
  - Contusion [Unknown]
